FAERS Safety Report 6421439-9 (Version None)
Quarter: 2009Q4

REPORT INFORMATION
  Report Type: 
  Country: None (occurrence: None)
  Receive Date: 20091029
  Receipt Date: 20091029
  Transmission Date: 20100525
  Serious: Yes (Death, Life-Threatening, Hospitalization, Other)
  Sender: FDA-Public Use
  Company Number: None

PATIENT
  Sex: Male
  Weight: 79.3795 kg

DRUGS (1)
  1. LEVAQUIN [Suspect]
     Indication: URINARY SYSTEM X-RAY ABNORMAL
     Dosage: ONCE DAILY PO
     Route: 048
     Dates: start: 20030207, end: 20030210

REACTIONS (11)
  - ASTHENIA [None]
  - BLINDNESS [None]
  - COAGULOPATHY [None]
  - DIALYSIS [None]
  - FAECAL INCONTINENCE [None]
  - FALL [None]
  - NAUSEA [None]
  - PYREXIA [None]
  - TOXIC EPIDERMAL NECROLYSIS [None]
  - URINARY INCONTINENCE [None]
  - VOMITING [None]
